FAERS Safety Report 8197101-1 (Version None)
Quarter: 2012Q1

REPORT INFORMATION
  Report Type: 
  Country: None (occurrence: None)
  Receive Date: 20120307
  Receipt Date: 20120228
  Transmission Date: 20120608
  Serious: Yes (Other)
  Sender: FDA-Public Use
  Company Number: AUR-APL-2012-00657

PATIENT

DRUGS (6)
  1. METFORMIN HCL [Concomitant]
  2. LISINOPRIL [Concomitant]
  3. SERTRALINE HYDROCHLORIDE [Suspect]
     Indication: PRODUCT USED FOR UNKNOWN INDICATION
     Dosage: (50 MG,1 D),ORAL
     Route: 048
  4. ECONTRIN (ACETYLSALICYLIC ACID) [Concomitant]
  5. HYDROCHLOROTHIAZIDE [Concomitant]
  6. GLYBURIDE [Concomitant]

REACTIONS (6)
  - MENIERE'S DISEASE [None]
  - DEAFNESS [None]
  - MALAISE [None]
  - TINNITUS [None]
  - VERTIGO [None]
  - DIZZINESS [None]
